FAERS Safety Report 10694538 (Version 1)
Quarter: 2015Q1

REPORT INFORMATION
  Report Type: Spontaneous
  Country: US (occurrence: US)
  Receive Date: 20150107
  Receipt Date: 20150107
  Transmission Date: 20150721
  Serious: Yes (Other)
  Sender: FDA-Public Use
  Company Number: US-BIOGENIDEC-2014BI138064

PATIENT
  Age: 59 Year
  Sex: Male

DRUGS (1)
  1. TECFIDERA [Suspect]
     Active Substance: DIMETHYL FUMARATE
     Indication: MULTIPLE SCLEROSIS
     Dates: start: 20130924

REACTIONS (2)
  - Papilloma viral infection [Not Recovered/Not Resolved]
  - Squamous cell carcinoma of the tongue [Not Recovered/Not Resolved]

NARRATIVE: CASE EVENT DATE: 201412
